FAERS Safety Report 6301717-4 (Version None)
Quarter: 2009Q3

REPORT INFORMATION
  Report Type: 
  Country: None (occurrence: None)
  Receive Date: 20090807
  Receipt Date: 20090728
  Transmission Date: 20100115
  Serious: Yes (Other)
  Sender: FDA-Public Use
  Company Number: SE-ELI_LILLY_AND_COMPANY-SE200907006742

PATIENT
  Age: 15 Year
  Sex: Female

DRUGS (2)
  1. STRATTERA [Suspect]
     Dosage: 126 MG AT ONCE
     Route: 065
  2. CITALOPRAM HYDROBROMIDE [Concomitant]
     Dosage: UNK, UNKNOWN
     Route: 065

REACTIONS (2)
  - ELECTROCARDIOGRAM QT PROLONGED [None]
  - OVERDOSE [None]
